FAERS Safety Report 13813164 (Version 1)
Quarter: 2017Q3

REPORT INFORMATION
  Report Type: Spontaneous
  Country: US (occurrence: US)
  Receive Date: 20170731
  Receipt Date: 20170731
  Transmission Date: 20171127
  Serious: Yes (Death)
  Sender: FDA-Public Use
  Company Number: US-JNJCP-30000397172

PATIENT
  Sex: Female

DRUGS (1)
  1. AVEENO NOS [Suspect]
     Active Substance: DIMETHICONE OR HOMOSALATE\OCTINOXATE\OCTISALATE\TITANIUM DIOXIDE
     Route: 048

REACTIONS (1)
  - Accidental exposure to product [Fatal]
